FAERS Safety Report 24926881 (Version 1)
Quarter: 2025Q1

REPORT INFORMATION
  Report Type: Spontaneous
  Country: JP (occurrence: JP)
  Receive Date: 20250205
  Receipt Date: 20250205
  Transmission Date: 20250408
  Serious: Yes (Hospitalization)
  Sender: GLAXOSMITHKLINE
  Company Number: JP-TAKEDA-2025TJP000403

PATIENT

DRUGS (2)
  1. ZEJULA [Suspect]
     Active Substance: NIRAPARIB
     Indication: Ovarian cancer
     Dosage: 200 MILLIGRAM, QD
     Route: 048
     Dates: start: 20241224
  2. ZEJULA [Suspect]
     Active Substance: NIRAPARIB
     Route: 048

REACTIONS (5)
  - Hypoglycaemia [Recovering/Resolving]
  - Urinary tract infection [Recovering/Resolving]
  - Vomiting [Not Recovered/Not Resolved]
  - Influenza [Recovered/Resolved]
  - Vomiting [Unknown]

NARRATIVE: CASE EVENT DATE: 20250107
